FAERS Safety Report 7509450-8 (Version None)
Quarter: 2011Q2

REPORT INFORMATION
  Report Type: 
  Country: None (occurrence: None)
  Receive Date: 20110527
  Receipt Date: 20110524
  Transmission Date: 20111010
  Serious: Yes (Other)
  Sender: FDA-Public Use
  Company Number: US-PFIZER INC-2011044418

PATIENT
  Sex: Female

DRUGS (5)
  1. ABILIFY [Concomitant]
     Indication: DEPRESSION
     Dosage: UNK,
  2. CHANTIX [Suspect]
     Indication: SMOKING CESSATION THERAPY
     Dosage: STARTER PACK
     Dates: start: 20070612, end: 20070801
  3. ABILIFY [Concomitant]
     Indication: BIPOLAR DISORDER
  4. EFFEXOR [Concomitant]
     Indication: BIPOLAR DISORDER
     Dosage: UNK,
     Dates: end: 20100101
  5. TOPAMAX [Concomitant]
     Indication: BIPOLAR DISORDER
     Dosage: UNK,

REACTIONS (4)
  - SUICIDAL BEHAVIOUR [None]
  - DEPRESSION [None]
  - BIPOLAR DISORDER [None]
  - ANXIETY [None]
